FAERS Safety Report 8534131-1 (Version None)
Quarter: 2012Q3

REPORT INFORMATION
  Report Type: 
  Country: None (occurrence: None)
  Receive Date: 20120724
  Receipt Date: 20120713
  Transmission Date: 20120928
  Serious: Yes (Life-Threatening, Hospitalization)
  Sender: FDA-Public Use
  Company Number: NL-ALEXION PHARMACEUTICALS INC.-A201201351

PATIENT
  Sex: Female

DRUGS (5)
  1. SOLIRIS [Suspect]
     Indication: PAROXYSMAL NOCTURNAL HAEMOGLOBINURIA
     Dosage: 600 MG, QW
     Route: 042
     Dates: start: 20111007, end: 20111027
  2. FOLIC ACID [Concomitant]
     Dosage: 5 MG, QD
     Route: 048
     Dates: start: 20101025
  3. ACENOCOUMAROL [Concomitant]
     Indication: THROMBOSIS PROPHYLAXIS
     Dosage: ^ACCORDING TO INR^
     Route: 048
     Dates: start: 20110113, end: 20120622
  4. SOLIRIS [Suspect]
     Dosage: 900 MG, Q2W
     Dates: start: 20111103
  5. VITAMIN B-12 [Concomitant]
     Dosage: 1 TIME, EVERY 2 MONTHS
     Route: 030
     Dates: start: 20101001

REACTIONS (2)
  - MENINGOCOCCAL SEPSIS [None]
  - HERPES SIMPLEX [None]
